FAERS Safety Report 15230120 (Version 1)
Quarter: 2018Q3

REPORT INFORMATION
  Report Type: Spontaneous
  Country: US (occurrence: US)
  Receive Date: 20180802
  Receipt Date: 20180802
  Transmission Date: 20181010
  Serious: Yes (Other)
  Sender: FDA-Public Use
  Company Number: US-ACCORD-065800

PATIENT
  Age: 70 Year
  Sex: Female

DRUGS (6)
  1. ACETYLSALICYLIC ACID [Concomitant]
     Active Substance: ASPIRIN
  2. PERJETA [Concomitant]
     Active Substance: PERTUZUMAB
  3. DOCETAXEL ACCORD [Suspect]
     Active Substance: DOCETAXEL
     Indication: BREAST CANCER
     Dates: start: 20140404, end: 20140718
  4. HERCEPTIN [Concomitant]
     Active Substance: TRASTUZUMAB
  5. HYDROCHLOROTHIAZIDE/VALSARTAN [Concomitant]
  6. OMEPRAZOLE. [Concomitant]
     Active Substance: OMEPRAZOLE

REACTIONS (1)
  - Alopecia [Not Recovered/Not Resolved]

NARRATIVE: CASE EVENT DATE: 2014
